FAERS Safety Report 4332029-6 (Version None)
Quarter: 2004Q2

REPORT INFORMATION
  Report Type: 
  Country: None (occurrence: None)
  Receive Date: 20040405
  Receipt Date: 20040326
  Transmission Date: 20050107
  Serious: Yes (Hospitalization)
  Sender: FDA-Public Use
  Company Number: PHRM2004FR01376

PATIENT
  Age: 67 Year
  Sex: Female

DRUGS (5)
  1. AREDIA [Suspect]
     Indication: HYPERCALCAEMIA OF MALIGNANCY
     Dosage: 90 MG, ONCE/SINGLE
     Route: 042
     Dates: start: 20040121, end: 20040121
  2. FRAXODI [Suspect]
     Dosage: .5 ML, QD
     Route: 058
     Dates: start: 20040123, end: 20040129
  3. SOLUPRED [Suspect]
     Dosage: 80 MG, QD
     Route: 048
     Dates: start: 20040109
  4. DIGOXIN [Concomitant]
     Indication: ATRIAL TACHYCARDIA
  5. ZOCOR [Concomitant]
     Indication: HYPERCHOLESTEROLAEMIA

REACTIONS (6)
  - ANAEMIA [None]
  - DYSPNOEA [None]
  - HYPOXIA [None]
  - MELAENA [None]
  - PHLEBITIS [None]
  - PULMONARY EMBOLISM [None]
